FAERS Safety Report 9363488 (Version 3)
Quarter: 2013Q3

REPORT INFORMATION
  Report Type: Spontaneous
  Country: US (occurrence: US)
  Receive Date: 20130624
  Receipt Date: 20130731
  Transmission Date: 20140515
  Serious: Yes (Other)
  Sender: FDA-Public Use
  Company Number: US-GENZYME-CERZ-1002932

PATIENT
  Sex: Male
  Weight: 90 kg

DRUGS (7)
  1. CEREZYME [Suspect]
     Indication: GAUCHER^S DISEASE
     Dosage: 3600 UNITS (40 MG/KG), Q2W
     Route: 042
     Dates: start: 201211
  2. CEREZYME [Suspect]
     Dosage: 3600 UNITS (40 MG/KG), Q2W
     Route: 042
     Dates: start: 1999
  3. BENADRYL [Concomitant]
     Indication: PREMEDICATION
     Dosage: 0.5-1 MG/ KG 50 MG OVER 30-60 MIN
     Route: 042
     Dates: start: 1999
  4. SOLU-MEDROL [Concomitant]
     Indication: PREMEDICATION
     Dosage: 60 MG, OVER 30 MIN
     Route: 042
     Dates: start: 1999
  5. XANAX [Concomitant]
     Indication: ANXIETY
     Dosage: 0.25 UNK, BID
     Route: 065
  6. OXYCODONE [Concomitant]
     Indication: PAIN
     Dosage: UNK
     Route: 065
  7. OXYCONTIN [Concomitant]
     Indication: PAIN
     Dosage: 80 UNK, QD
     Route: 065

REACTIONS (2)
  - Disease progression [Unknown]
  - Arthralgia [Not Recovered/Not Resolved]
